FAERS Safety Report 5819068-0 (Version None)
Quarter: 2008Q3

REPORT INFORMATION
  Report Type: 
  Country: None (occurrence: None)
  Receive Date: 20080721
  Receipt Date: 20080721
  Transmission Date: 20090109
  Serious: Yes (Hospitalization, Other)
  Sender: FDA-Public Use
  Company Number: None

PATIENT
  Age: 15 Year
  Sex: Female
  Weight: 72.5755 kg

DRUGS (1)
  1. MEROPENUM [Suspect]
     Indication: BACTERIAL INFECTION
     Dosage: TID IV
     Route: 042
     Dates: start: 20080710, end: 20080719

REACTIONS (4)
  - BLISTER [None]
  - ERYTHEMA [None]
  - HEADACHE [None]
  - PYREXIA [None]
